FAERS Safety Report 13671265 (Version 1)
Quarter: 2017Q2

REPORT INFORMATION
  Report Type: Spontaneous
  Country: US (occurrence: US)
  Receive Date: 20170620
  Receipt Date: 20170620
  Transmission Date: 20170830
  Serious: No
  Sender: FDA-Public Use
  Company Number: US-ROCHE-1018647

PATIENT
  Age: 40 Year
  Sex: Female
  Weight: 44.1 kg

DRUGS (2)
  1. IXEMPRA [Concomitant]
     Active Substance: IXABEPILONE
     Route: 042
     Dates: end: 20111014
  2. XELODA [Suspect]
     Active Substance: CAPECITABINE
     Indication: BREAST CANCER METASTATIC
     Route: 065
     Dates: start: 20111014, end: 20111019

REACTIONS (2)
  - Myalgia [Unknown]
  - Bone pain [Unknown]

NARRATIVE: CASE EVENT DATE: 20111019
